FAERS Safety Report 7207240-7 (Version None)
Quarter: 2011Q1

REPORT INFORMATION
  Report Type: 
  Country: None (occurrence: None)
  Receive Date: 20110103
  Receipt Date: 20101220
  Transmission Date: 20110831
  Serious: Yes (Hospitalization)
  Sender: FDA-Public Use
  Company Number: DE-AMGEN-DEUCT2010002865

PATIENT

DRUGS (9)
  1. METHOTREXATE [Concomitant]
     Dosage: 10 MG (FREQUENCY UNKNOWN)
  2. CALCIUM [Concomitant]
     Dosage: UNKNOWN
  3. ACETYLSALICYLIC ACID SRT [Concomitant]
     Dosage: 100 MG (FREQUENCY UNKNOWN)
  4. PREDNISOLONE [Concomitant]
     Dosage: 5 MG (FREQUENCY UNKNOWN)
  5. ENBREL [Suspect]
     Indication: RHEUMATOID ARTHRITIS
     Dosage: 50 MG, QWK
     Route: 058
     Dates: start: 20081101
  6. FOSAVANCE [Concomitant]
     Dosage: UNKNOWN
  7. ENBREL [Suspect]
     Indication: POLYARTHRITIS
  8. FOLIC ACID [Concomitant]
     Dosage: UNKNOWN
  9. METHIMAZOLE [Concomitant]
     Dosage: 20 MG, QWK
     Route: 058

REACTIONS (2)
  - CORONARY ARTERY DISEASE [None]
  - ACUTE MYOCARDIAL INFARCTION [None]
